FAERS Safety Report 13682733 (Version 1)
Quarter: 2017Q2

REPORT INFORMATION
  Report Type: Spontaneous
  Country: US (occurrence: US)
  Receive Date: 20170623
  Receipt Date: 20170623
  Transmission Date: 20170830
  Serious: No
  Sender: FDA-Public Use
  Company Number: US-MALLINCKRODT-T201606185

PATIENT
  Age: 39 Year
  Sex: Male

DRUGS (1)
  1. H.P. ACTHAR [Suspect]
     Active Substance: CORTICOTROPIN
     Indication: RENAL TRANSPLANT
     Dosage: 80 UNITS TWICE A WEEK
     Route: 058
     Dates: start: 20161014

REACTIONS (2)
  - Disturbance in attention [Unknown]
  - Insomnia [Unknown]

NARRATIVE: CASE EVENT DATE: 20161101
